FAERS Safety Report 5189962-5 (Version None)
Quarter: 2006Q4

REPORT INFORMATION
  Report Type: 
  Country: None (occurrence: None)
  Receive Date: 20061218
  Receipt Date: 20061207
  Transmission Date: 20070319
  Serious: Yes (Death)
  Sender: FDA-Public Use
  Company Number: 2006JP005078

PATIENT
  Age: 86 Year
  Sex: Male

DRUGS (9)
  1. VESICARE [Suspect]
     Indication: HYPERTONIC BLADDER
     Dosage: 5 MG, UNKNOWN/D, ORAL
     Route: 048
     Dates: start: 20061026
  2. HARNAL (TAMSULOSIN) ORODISPERSABLE CR TABLET, UNKNOWN [Suspect]
     Indication: BENIGN PROSTATIC HYPERPLASIA
  3. ATELEC (CILNIDIPINE) [Concomitant]
  4. BLOPRESS (CANDESARTAN CILEXETIL) [Concomitant]
  5. BUFFERIN (MAGNESIUM CARBONATE) [Concomitant]
  6. NEUER (CETRAXATE HYDROCHLORIDE) [Concomitant]
  7. MEXITIL [Concomitant]
  8. ZYRTEC [Concomitant]
  9. ROXATIDINE ACETATE HCL [Concomitant]

REACTIONS (2)
  - INJURY ASPHYXIATION [None]
  - VOMITING [None]
